FAERS Safety Report 4636500-9 (Version None)
Quarter: 2005Q2

REPORT INFORMATION
  Report Type: 
  Country: None (occurrence: None)
  Receive Date: 20050414
  Receipt Date: 20050414
  Transmission Date: 20051028
  Serious: Yes (Other)
  Sender: FDA-Public Use
  Company Number: None

PATIENT
  Age: 36 Year
  Sex: Female
  Weight: 61.2356 kg

DRUGS (1)
  1. FLUCONAZOLE [Suspect]
     Indication: VAGINAL CANDIDIASIS
     Dosage: 150MG   ONCE A DAY   ORAL
     Route: 048
     Dates: start: 20050324, end: 20050325

REACTIONS (2)
  - DRUG INEFFECTIVE [None]
  - PHARMACEUTICAL PRODUCT COMPLAINT [None]
